FAERS Safety Report 25579784 (Version 3)
Quarter: 2025Q4

REPORT INFORMATION
  Report Type: Spontaneous
  Country: EU (occurrence: EU)
  Receive Date: 20250718
  Receipt Date: 20251016
  Transmission Date: 20260118
  Serious: Yes (Hospitalization, Other)
  Sender: APELLIS PHARMACEUTICALS
  Company Number: EU-BIOVITRUM-2025-FR-008744

PATIENT
  Weight: 77.7 kg

DRUGS (2)
  1. PEGCETACOPLAN [Suspect]
     Active Substance: PEGCETACOPLAN
     Indication: C3 glomerulopathy
     Dosage: 1080MG SUBCUTANEOUSLY 2 X PER WEEK (TWICE PER WEEK) MONDAY-THURSDAY, 1080 MG TWICE A WEEK
     Route: 058
     Dates: start: 20250630, end: 20250707
  2. PEGCETACOPLAN [Suspect]
     Active Substance: PEGCETACOPLAN
     Indication: Glomerulonephritis

REACTIONS (7)
  - Off label use [Recovered/Resolved]
  - Nephropathy toxic [Unknown]
  - Acute kidney injury [Recovering/Resolving]
  - Renal tubular disorder [Unknown]
  - Glomerulonephritis [Recovering/Resolving]
  - Condition aggravated [Recovering/Resolving]
  - Chromaturia [Recovering/Resolving]

NARRATIVE: CASE EVENT DATE: 20250630
